FAERS Safety Report 8601780 (Version 2)
Quarter: 2012Q4

REPORT INFORMATION
  Report Type: 
  Country: US (occurrence: US)
  Receive Date: 20120606
  Receipt Date: 20121107
  Transmission Date: 20130627
  Serious: No
  Sender: FDA-Public Use
  Company Number: US-ASTRAZENECA-2012SE32496

PATIENT
  Sex: Female

DRUGS (2)
  1. SYMBICORT [Suspect]
     Indication: ASTHMA
     Route: 055
     Dates: start: 2010
  2. SYMBICORT [Suspect]
     Indication: ASTHMA
     Dosage: 80/4.5 MCG ONE PUFF TWO TIMES A DAY
     Route: 055

REACTIONS (5)
  - Malaise [Not Recovered/Not Resolved]
  - Laryngitis [Unknown]
  - Inflammation [Unknown]
  - Asthma [Unknown]
  - Off label use [Unknown]
